FAERS Safety Report 21635950 (Version 1)
Quarter: 2022Q4

REPORT INFORMATION
  Report Type: Spontaneous
  Country: US (occurrence: US)
  Receive Date: 20221123
  Receipt Date: 20221123
  Transmission Date: 20230113
  Serious: No
  Sender: FDA-Public Use
  Company Number: US-GLENMARK PHARMACEUTICALS-2022GMK072647

PATIENT

DRUGS (5)
  1. ZONISAMIDE [Suspect]
     Active Substance: ZONISAMIDE
     Indication: Seizure
     Dosage: 4 DOSAGE FORMS, HS, (4 100 MG CAPSULES AT BEDTIME)
     Route: 065
     Dates: start: 2010, end: 202105
  2. DILANTIN [Concomitant]
     Active Substance: PHENYTOIN
     Indication: Generalised tonic-clonic seizure
     Dosage: 2 DOSAGE FORM, BID (100 MG 2 AT MORNING AND 2 AT NIGHT) (TOTAL DAILY DOSE: 400 MG)
     Route: 065
     Dates: start: 1965
  3. KLONOPIN [Concomitant]
     Active Substance: CLONAZEPAM
     Indication: Seizure
     Dosage: 2 DOSAGE FORM, BID (2 AT MORNING AND 2 AT NIGHT) (TOTAL DAILY DOSE: 5 MG)
     Route: 065
     Dates: start: 2000
  4. LAMICTAL [Concomitant]
     Active Substance: LAMOTRIGINE
     Indication: Petit mal epilepsy
     Dosage: 1 DOSAGE FORM, BID (TOTAL DAILY DOSE: 200 MG)
     Route: 065
     Dates: start: 2019
  5. ZONEGRAN [Concomitant]
     Active Substance: ZONISAMIDE
     Indication: Product used for unknown indication
     Dosage: UNK
     Route: 065

REACTIONS (2)
  - Contusion [Recovered/Resolved]
  - Increased tendency to bruise [Recovered/Resolved]

NARRATIVE: CASE EVENT DATE: 20100101
